FAERS Safety Report 5252364-7 (Version None)
Quarter: 2007Q1

REPORT INFORMATION
  Report Type: 
  Country: None (occurrence: None)
  Receive Date: 20070301
  Receipt Date: 20060809
  Transmission Date: 20070707
  Serious: No
  Sender: FDA-Public Use
  Company Number: US-BRISTOL-MYERS SQUIBB COMPANY-13471107

PATIENT

DRUGS (4)
  1. TAXOL [Suspect]
     Route: 042
  2. BENADRYL [Concomitant]
     Indication: PREMEDICATION
     Route: 042
  3. DEXAMETHASONE [Concomitant]
     Indication: PREMEDICATION
     Route: 048
  4. CIMETIDINE HCL [Concomitant]
     Indication: PREMEDICATION
     Route: 042

REACTIONS (2)
  - BLOOD PRESSURE DECREASED [None]
  - INFUSION RELATED REACTION [None]
